FAERS Safety Report 14561717 (Version 2)
Quarter: 2018Q1

REPORT INFORMATION
  Report Type: Spontaneous
  Country: IT (occurrence: IT)
  Receive Date: 20180222
  Receipt Date: 20180316
  Transmission Date: 20180509
  Serious: Yes (Hospitalization)
  Sender: FDA-Public Use
  Company Number: IT-EMD SERONO-9012026

PATIENT
  Age: 35 Year
  Sex: Female
  Weight: 98 kg

DRUGS (2)
  1. GONAL-F [Suspect]
     Active Substance: FOLLITROPIN
     Indication: OVULATION INDUCTION
     Dosage: UNIT DOSE 150 (UNSPECIFIED UNIT)
     Route: 058
  2. GONAL-F [Suspect]
     Active Substance: FOLLITROPIN
     Dosage: UNIT DOSE 125 (UNSPECIFIED UNIT)
     Route: 058

REACTIONS (1)
  - Ovarian hyperstimulation syndrome [Recovered/Resolved]

NARRATIVE: CASE EVENT DATE: 20180208
